FAERS Safety Report 10186841 (Version 2)
Quarter: 2014Q2

REPORT INFORMATION
  Report Type: Report from Study
  Country: CA (occurrence: CA)
  Receive Date: 20140522
  Receipt Date: 20140618
  Transmission Date: 20141212
  Serious: Yes (Other)
  Sender: FDA-Public Use
  Company Number: CA-ABBVIE-14K-028-1238292-00

PATIENT
  Age: 71 Year
  Sex: Male
  Weight: 104 kg

DRUGS (6)
  1. LUPRON DEPOT [Suspect]
     Indication: PROSTATE CANCER
     Dosage: N OF COURSE 7
     Route: 030
     Dates: start: 20121010
  2. ZESTORETIC [Concomitant]
     Indication: HYPERTENSION
     Dosage: 20/12.5MG
     Route: 048
     Dates: start: 200406
  3. CRESTOR [Concomitant]
     Indication: HYPERLIPIDAEMIA
     Route: 048
     Dates: start: 200406
  4. TYLENOL EXTRA STRENGTH [Concomitant]
     Indication: BACK PAIN
     Route: 048
     Dates: start: 1975
  5. PERCOCET [Concomitant]
     Indication: HAEMORRHOIDS
     Dosage: 1-2 TABS
     Route: 048
     Dates: start: 201212
  6. PERCOCET [Concomitant]
     Dosage: 1-2 TABS
     Route: 048
     Dates: start: 201305

REACTIONS (6)
  - Peripheral swelling [Unknown]
  - Erythema [Unknown]
  - Deep vein thrombosis [Recovering/Resolving]
  - Thrombosis [Unknown]
  - Haemorrhoids [Unknown]
  - Epistaxis [Unknown]
